FAERS Safety Report 4723151-0 (Version None)
Quarter: 2005Q3

REPORT INFORMATION
  Report Type: 
  Country: None (occurrence: None)
  Receive Date: 20050719
  Receipt Date: 20040723
  Transmission Date: 20060218
  Serious: Yes (Other)
  Sender: FDA-Public Use
  Company Number: 2004225269US

PATIENT
  Age: 68 Year
  Sex: Male
  Weight: 113.4 kg

DRUGS (8)
  1. CELEBREX [Suspect]
     Indication: ARTHRITIS
     Dosage: 200 MG, QD
     Dates: start: 20020101, end: 20020101
  2. PLAVIX [Suspect]
     Dates: end: 20040101
  3. ACETYLSALICYLIC ACID SRT [Suspect]
     Dosage: 81 MG, QD
  4. NORVASC [Concomitant]
  5. TOPROL-XL [Concomitant]
  6. PROSCAR [Concomitant]
  7. TAMSULOSIN HYDROCHLORIDE [Concomitant]
  8. ZOCOR [Concomitant]

REACTIONS (1)
  - MELAENA [None]
